FAERS Safety Report 4494460-8 (Version None)
Quarter: 2004Q4

REPORT INFORMATION
  Report Type: 
  Country: None (occurrence: None)
  Receive Date: 20041102
  Receipt Date: 20041019
  Transmission Date: 20050328
  Serious: Yes (Hospitalization)
  Sender: FDA-Public Use
  Company Number: 2004241122DE

PATIENT
  Age: 77 Year
  Sex: Female
  Weight: 78 kg

DRUGS (2)
  1. BEXTRA [Suspect]
     Indication: SPONDYLITIS
     Dosage: 20 MG, QD, ORAL
     Route: 048
     Dates: start: 20040802, end: 20040808
  2. ANTIHYPERTENSIVES [Concomitant]

REACTIONS (4)
  - ANAEMIA [None]
  - ASTHENIA [None]
  - FAECES DISCOLOURED [None]
  - PALLOR [None]
